FAERS Safety Report 5767373-9 (Version None)
Quarter: 2008Q2

REPORT INFORMATION
  Report Type: 
  Country: None (occurrence: None)
  Receive Date: 20080612
  Receipt Date: 20080603
  Transmission Date: 20081010
  Serious: Yes (Other)
  Sender: FDA-Public Use
  Company Number: B0376882A

PATIENT
  Age: 17 Year
  Sex: Female

DRUGS (6)
  1. PAROXETINE HCL [Suspect]
     Route: 065
     Dates: start: 19950512
  2. ACETAMINOPHEN [Suspect]
  3. ALCOHOL [Suspect]
  4. IMIPRAMINE [Concomitant]
     Dosage: 50MG PER DAY
     Dates: start: 19950922
  5. PROZAC [Concomitant]
     Dates: start: 19960131, end: 19990101
  6. ST JOHNS WORT [Concomitant]
     Dates: start: 19990101, end: 20050101

REACTIONS (14)
  - AGGRESSION [None]
  - BINGE EATING [None]
  - CRYING [None]
  - DEPRESSION [None]
  - DEREALISATION [None]
  - DRUG WITHDRAWAL SYNDROME [None]
  - FATIGUE [None]
  - HUNGER [None]
  - MOOD SWINGS [None]
  - NIGHTMARE [None]
  - OVERDOSE [None]
  - SOCIAL AVOIDANT BEHAVIOUR [None]
  - SUICIDE ATTEMPT [None]
  - TEARFULNESS [None]
